FAERS Safety Report 14934904 (Version 2)
Quarter: 2018Q2

REPORT INFORMATION
  Report Type: Spontaneous
  Country: JP (occurrence: JP)
  Receive Date: 20180524
  Receipt Date: 20180606
  Transmission Date: 20180711
  Serious: Yes (Hospitalization, Other)
  Sender: FDA-Public Use
  Company Number: JP-DSJP-DSJ-2018-115019

PATIENT

DRUGS (2)
  1. LIXIANA OD TABLETS 60MG [Suspect]
     Active Substance: EDOXABAN TOSYLATE
     Indication: ATRIAL FIBRILLATION
     Dosage: 30 MG, QD
     Route: 048
     Dates: start: 20171213, end: 20180324
  2. LIXIANA OD TABLETS 60MG [Suspect]
     Active Substance: EDOXABAN TOSYLATE
     Dosage: 30MG/DAY
     Route: 048
     Dates: start: 20180425

REACTIONS (4)
  - Fall [None]
  - Contusion [Recovered/Resolved with Sequelae]
  - Cerebral haemorrhage [None]
  - Brain contusion [Recovered/Resolved with Sequelae]

NARRATIVE: CASE EVENT DATE: 20180324
